FAERS Safety Report 25132119 (Version 1)
Quarter: 2025Q1

REPORT INFORMATION
  Report Type: Spontaneous
  Country: US (occurrence: None)
  Receive Date: 20250328
  Receipt Date: 20250328
  Transmission Date: 20250408
  Serious: No
  Sender: AXSOME THERAPEUTICS, INC.
  Company Number: US-Axsome Therapeutics, Inc.-AXS202405-000591

PATIENT
  Age: 42 Year
  Sex: Male
  Weight: 84.8 kg

DRUGS (4)
  1. SUNOSI [Suspect]
     Active Substance: SOLRIAMFETOL
     Indication: Narcolepsy
     Route: 048
     Dates: start: 20240410, end: 202404
  2. SUNOSI [Suspect]
     Active Substance: SOLRIAMFETOL
     Route: 048
     Dates: start: 202404, end: 2024
  3. LITHIUM [Concomitant]
     Active Substance: LITHIUM
     Indication: Bipolar disorder
     Route: 065
     Dates: start: 2019
  4. REXULTI [Concomitant]
     Active Substance: BREXPIPRAZOLE
     Indication: Bipolar disorder
     Route: 065
     Dates: start: 2023

REACTIONS (4)
  - Somnolence [Unknown]
  - Abdominal discomfort [Unknown]
  - Therapeutic response shortened [Unknown]
  - Drug effect less than expected [Unknown]

NARRATIVE: CASE EVENT DATE: 20240101
